FAERS Safety Report 21292234 (Version 1)
Quarter: 2022Q3

REPORT INFORMATION
  Report Type: Spontaneous
  Country: US (occurrence: US)
  Receive Date: 20220905
  Receipt Date: 20220905
  Transmission Date: 20221027
  Serious: Yes (Hospitalization, Other)
  Sender: FDA-Public Use
  Company Number: US-BRISTOL-MYERS SQUIBB COMPANY-2022-096396

PATIENT
  Age: 63 Year
  Sex: Female
  Weight: 122.9 kg

DRUGS (6)
  1. REVLIMID [Suspect]
     Active Substance: LENALIDOMIDE
     Indication: Plasma cell myeloma
     Route: 048
     Dates: start: 20200221, end: 20220820
  2. MIRTAZAPINE [Concomitant]
     Active Substance: MIRTAZAPINE
  3. OLANZAPINE [Concomitant]
     Active Substance: OLANZAPINE
  4. LEVOTHYROXINE [Concomitant]
     Active Substance: LEVOTHYROXINE
  5. ATORVASTATIN [Concomitant]
     Active Substance: ATORVASTATIN
  6. PANTOPRAZOLE [Concomitant]
     Active Substance: PANTOPRAZOLE

REACTIONS (4)
  - Anaemia [Unknown]
  - Hypokalaemia [Unknown]
  - Hypotension [Unknown]
  - Fall [Unknown]

NARRATIVE: CASE EVENT DATE: 20220820
